FAERS Safety Report 19710340 (Version 2)
Quarter: 2021Q3

REPORT INFORMATION
  Report Type: Spontaneous
  Country: US (occurrence: US)
  Receive Date: 20210816
  Receipt Date: 20210913
  Transmission Date: 20211014
  Serious: No
  Sender: FDA-Public Use
  Company Number: US-MYLANLABS-2021M1043270

PATIENT
  Sex: Female
  Weight: 73 kg

DRUGS (1)
  1. PROCTOFOAM HC [Suspect]
     Active Substance: HYDROCORTISONE ACETATE\PRAMOXINE HYDROCHLORIDE
     Indication: HAEMORRHOIDS
     Dosage: UNK, PRN
     Route: 054
     Dates: start: 2021

REACTIONS (2)
  - Product quality issue [Not Recovered/Not Resolved]
  - Wrong schedule [Unknown]

NARRATIVE: CASE EVENT DATE: 2021
